FAERS Safety Report 8488125-5 (Version None)
Quarter: 2012Q3

REPORT INFORMATION
  Report Type: 
  Country: None (occurrence: None)
  Receive Date: 20120705
  Receipt Date: 20120625
  Transmission Date: 20120928
  Serious: Yes (Hospitalization)
  Sender: FDA-Public Use
  Company Number: US-BAYER-2012-062582

PATIENT
  Age: 29 Year
  Sex: Female
  Weight: 147.85 kg

DRUGS (14)
  1. METFORMIN HCL [Concomitant]
     Indication: POLYCYSTIC OVARIES
     Dosage: TWO TABLETS ONCE DAILY
  2. ACETAMINOPHEN [Concomitant]
     Route: 048
  3. YAZ [Suspect]
     Indication: HIRSUTISM
  4. PROAIR HFA [Concomitant]
     Dosage: UNK
     Dates: start: 20090101
  5. TRAMADOL HCL [Concomitant]
     Dosage: 50 MG,  FOUR TIMES A DAY
     Route: 048
  6. SENOKOT [Concomitant]
  7. DROSPIRENONE AND ETHINYL ESTRADIOL [Suspect]
     Indication: POLYCYSTIC OVARIES
     Dosage: UNK
     Dates: start: 20100917, end: 20101110
  8. YAZ [Suspect]
     Indication: POLYCYSTIC OVARIES
     Dosage: UNK
  9. YAZ [Suspect]
     Indication: FLUID RETENTION
  10. DROSPIRENONE AND ETHINYL ESTRADIOL [Suspect]
     Indication: HIRSUTISM
  11. IBUPROFEN [Concomitant]
     Indication: PREMENSTRUAL SYNDROME
     Dosage: 800 MG, UNK
  12. YASMIN [Suspect]
  13. DROSPIRENONE AND ETHINYL ESTRADIOL [Suspect]
     Indication: FLUID RETENTION
  14. NORCO [Concomitant]

REACTIONS (3)
  - OEDEMA PERIPHERAL [None]
  - PAIN IN EXTREMITY [None]
  - DEEP VEIN THROMBOSIS [None]
